FAERS Safety Report 23591852 (Version 2)
Quarter: 2024Q1

REPORT INFORMATION
  Report Type: Spontaneous
  Country: KR (occurrence: KR)
  Receive Date: 20240304
  Receipt Date: 20240326
  Transmission Date: 20240409
  Serious: No
  Sender: FDA-Public Use
  Company Number: KR-PFIZER INC-PV202400018816

PATIENT
  Age: 11 Year
  Sex: Female

DRUGS (1)
  1. GENOTROPIN [Suspect]
     Active Substance: SOMATROPIN
     Dosage: 4.8 IU, 6 TIMES PER WEEK
     Dates: start: 20221118

REACTIONS (3)
  - Poor quality device used [Unknown]
  - Device breakage [Unknown]
  - Device use error [Unknown]

NARRATIVE: CASE EVENT DATE: 20240207
